FAERS Safety Report 6190444-2 (Version None)
Quarter: 2009Q2

REPORT INFORMATION
  Report Type: 
  Country: None (occurrence: None)
  Receive Date: 20090513
  Receipt Date: 20090513
  Transmission Date: 20091009
  Serious: Yes (Hospitalization)
  Sender: FDA-Public Use
  Company Number: None

PATIENT
  Age: 33 Year
  Sex: Male
  Weight: 125 kg

DRUGS (2)
  1. MOBAN [Suspect]
     Indication: BIPOLAR DISORDER
     Dosage: 100MG TWICE DAILY PO
     Route: 048
     Dates: start: 20090218, end: 20090227
  2. MOBAN [Suspect]
     Indication: SCHIZOAFFECTIVE DISORDER
     Dosage: 100MG TWICE DAILY PO
     Route: 048
     Dates: start: 20090218, end: 20090227

REACTIONS (1)
  - DYSTONIA [None]
